FAERS Safety Report 9845858 (Version 4)
Quarter: 2014Q4

REPORT INFORMATION
  Report Type: Report from Study
  Country: MX (occurrence: MX)
  Receive Date: 20140127
  Receipt Date: 20141006
  Transmission Date: 20150529
  Serious: Yes (Hospitalization)
  Sender: FDA-Public Use
  Company Number: MX-UCBSA-110456

PATIENT
  Age: 30 Year
  Sex: Female
  Weight: 47 kg

DRUGS (7)
  1. CERTOLIZUMAB PEGOL RA [Suspect]
     Active Substance: CERTOLIZUMAB PEGOL
     Indication: RHEUMATOID ARTHRITIS
     Dosage: NUMBER OF DOSES RECEIVED: 18
     Route: 058
     Dates: start: 20130521, end: 20140114
  2. FOLIC ACID. [Concomitant]
     Active Substance: FOLIC ACID
     Indication: PROPHYLAXIS
     Dosage: 5 MG, ONCE DAILY (QD)
     Route: 048
     Dates: start: 20130521, end: 20140117
  3. AZITHROMYCIN [Concomitant]
     Active Substance: AZITHROMYCIN ANHYDROUS
     Indication: BRONCHITIS
     Dosage: 500 MG, ONCE DAILY (QD)
     Route: 048
     Dates: start: 20131226, end: 20131228
  4. BECLOMETHASONE [Concomitant]
     Active Substance: BECLOMETHASONE
     Indication: BRONCHITIS
     Dosage: 20 ?G, 2X/DAY (BID)
     Route: 055
     Dates: start: 20140106, end: 20140117
  5. CEFTRIAXONE. [Concomitant]
     Active Substance: CEFTRIAXONE
     Indication: BRONCHITIS
     Dosage: 1 G, ONCE DAILY (QD)
     Route: 030
     Dates: start: 20140106, end: 20140110
  6. METHOTREXATE [Concomitant]
     Active Substance: METHOTREXATE
     Indication: RHEUMATOID ARTHRITIS
     Dosage: 25 MG, WEEKLY (QW)
     Route: 048
     Dates: start: 20130521, end: 20140117
  7. CELESTAMINE NS [Concomitant]
     Indication: BRONCHITIS
     Dosage: 1 DF, EV 2 DAYS (QOD)
     Route: 048
     Dates: start: 20140106, end: 20140112

REACTIONS (1)
  - Pneumonia [Recovered/Resolved]

NARRATIVE: CASE EVENT DATE: 20140117
